FAERS Safety Report 25689062 (Version 1)
Quarter: 2025Q3

REPORT INFORMATION
  Report Type: Spontaneous
  Country: US (occurrence: US)
  Receive Date: 20250818
  Receipt Date: 20250818
  Transmission Date: 20251021
  Serious: Yes (Hospitalization)
  Sender: SUNOVION
  Company Number: US-MYOVANT SCIENCES GMBH-2024MYSCI0600050

PATIENT
  Age: 67 Year
  Sex: Male

DRUGS (4)
  1. ORGOVYX [Suspect]
     Active Substance: RELUGOLIX
     Indication: Prostate cancer
     Dosage: 120 MILLIGRAM, QD
     Route: 048
     Dates: end: 20240602
  2. ORGOVYX [Suspect]
     Active Substance: RELUGOLIX
     Route: 048
  3. ORGOVYX [Suspect]
     Active Substance: RELUGOLIX
     Route: 048
  4. PAROXETINE [Suspect]
     Active Substance: PAROXETINE
     Indication: Hot flush

REACTIONS (10)
  - Intervertebral disc disorder [Unknown]
  - Cardiac disorder [Unknown]
  - Balance disorder [Unknown]
  - Eye irritation [Unknown]
  - Central obesity [Unknown]
  - Dizziness [Unknown]
  - Hypertension [Unknown]
  - Blood cholesterol increased [Unknown]
  - Hot flush [Recovering/Resolving]
  - Therapy interrupted [Unknown]

NARRATIVE: CASE EVENT DATE: 20240603
